FAERS Safety Report 9542027 (Version 1)
Quarter: 2013Q3

REPORT INFORMATION
  Report Type: Spontaneous
  Country: DZ (occurrence: DZ)
  Receive Date: 20130923
  Receipt Date: 20130923
  Transmission Date: 20140515
  Serious: Yes (Other)
  Sender: FDA-Public Use
  Company Number: DZ-SANOFI-AVENTIS-2013SA092862

PATIENT
  Age: 55 Year
  Sex: Male

DRUGS (4)
  1. LANTUS SOLOSTAR [Suspect]
     Indication: TYPE 2 DIABETES MELLITUS
     Route: 058
     Dates: start: 2012
  2. LANTUS SOLOSTAR [Suspect]
     Indication: TYPE 2 DIABETES MELLITUS
     Route: 058
  3. SOLOSTAR [Concomitant]
     Dates: start: 2012
  4. SOLOSTAR [Concomitant]

REACTIONS (3)
  - Injection site necrosis [Unknown]
  - Injection site infection [Unknown]
  - Injection site pain [Unknown]
